FAERS Safety Report 4472947-1 (Version None)
Quarter: 2004Q4

REPORT INFORMATION
  Report Type: 
  Country: None (occurrence: None)
  Receive Date: 20041013
  Receipt Date: 20040608
  Transmission Date: 20050328
  Serious: Yes (Death)
  Sender: FDA-Public Use
  Company Number: FR-ABBOTT-04P-056-0263605-00

PATIENT
  Sex: Male
  Weight: 84 kg

DRUGS (2)
  1. KALETRA [Suspect]
     Indication: HIV INFECTION
     Route: 048
     Dates: start: 20011024
  2. EFAVIRENZ [Suspect]
     Indication: HIV INFECTION
     Route: 048
     Dates: start: 20011024

REACTIONS (7)
  - COMPLETED SUICIDE [None]
  - DEPRESSION [None]
  - FATIGUE [None]
  - HEADACHE [None]
  - INJURY ASPHYXIATION [None]
  - INSOMNIA [None]
  - MEMORY IMPAIRMENT [None]
